FAERS Safety Report 13409318 (Version 4)
Quarter: 2022Q4

REPORT INFORMATION
  Report Type: Spontaneous
  Country: US (occurrence: US)
  Receive Date: 20170406
  Receipt Date: 20221227
  Transmission Date: 20230112
  Serious: No
  Sender: FDA-Public Use
  Company Number: US-JNJFOC-20170124612

PATIENT
  Age: 13 Year
  Sex: Male

DRUGS (16)
  1. RISPERDAL [Suspect]
     Active Substance: RISPERIDONE
     Indication: Aggression
     Route: 048
     Dates: start: 20060616, end: 20070103
  2. RISPERDAL [Suspect]
     Active Substance: RISPERIDONE
     Indication: Intermittent explosive disorder
     Route: 048
  3. RISPERDAL [Suspect]
     Active Substance: RISPERIDONE
     Indication: Behaviour disorder
  4. RISPERDAL [Suspect]
     Active Substance: RISPERIDONE
     Indication: Anger
  5. RISPERDAL [Suspect]
     Active Substance: RISPERIDONE
     Indication: Mood swings
  6. RISPERDAL [Suspect]
     Active Substance: RISPERIDONE
     Indication: Aggression
     Route: 048
     Dates: start: 20050503, end: 20060422
  7. RISPERDAL [Suspect]
     Active Substance: RISPERIDONE
     Indication: Behaviour disorder
     Route: 048
  8. RISPERDAL [Suspect]
     Active Substance: RISPERIDONE
     Indication: Intermittent explosive disorder
  9. RISPERDAL [Suspect]
     Active Substance: RISPERIDONE
     Indication: Mood swings
  10. RISPERDAL [Suspect]
     Active Substance: RISPERIDONE
     Indication: Anger
  11. RISPERIDONE [Suspect]
     Active Substance: RISPERIDONE
     Indication: Intermittent explosive disorder
     Route: 048
  12. RISPERIDONE [Suspect]
     Active Substance: RISPERIDONE
     Indication: Aggression
     Route: 048
     Dates: start: 20110407, end: 20110620
  13. RISPERIDONE [Suspect]
     Active Substance: RISPERIDONE
     Indication: Behaviour disorder
  14. RISPERIDONE [Suspect]
     Active Substance: RISPERIDONE
     Indication: Anger
  15. RISPERIDONE [Suspect]
     Active Substance: RISPERIDONE
     Indication: Agitation
  16. DEPAKOTE ER [Suspect]
     Active Substance: DIVALPROEX SODIUM
     Indication: Drug therapy
     Route: 065

REACTIONS (6)
  - Emotional distress [Unknown]
  - Gynaecomastia [Unknown]
  - Abnormal weight gain [Recovered/Resolved]
  - Dry mouth [Unknown]
  - Fatigue [Unknown]
  - Hypersomnia [Unknown]

NARRATIVE: CASE EVENT DATE: 20091230
